FAERS Safety Report 6298196-2 (Version None)
Quarter: 2009Q3

REPORT INFORMATION
  Report Type: 
  Country: None (occurrence: None)
  Receive Date: 20090805
  Receipt Date: 20090731
  Transmission Date: 20100115
  Serious: Yes (Death)
  Sender: FDA-Public Use
  Company Number: US-BRISTOL-MYERS SQUIBB COMPANY-14724421

PATIENT
  Age: 7 Year

DRUGS (1)
  1. ETOPOSIDE [Suspect]
     Dosage: 4 TREATMENTS

REACTIONS (1)
  - DEATH [None]
